FAERS Safety Report 5202253-9 (Version None)
Quarter: 2007Q1

REPORT INFORMATION
  Report Type: 
  Country: None (occurrence: None)
  Receive Date: 20070109
  Receipt Date: 20070103
  Transmission Date: 20070707
  Serious: Yes (Hospitalization)
  Sender: FDA-Public Use
  Company Number: 2006-010506

PATIENT
  Age: 42 Year
  Sex: Female
  Weight: 74.8 kg

DRUGS (13)
  1. FLOLAN [Suspect]
     Route: 042
     Dates: start: 20061002, end: 20061130
  2. CYMBALTA [Concomitant]
     Indication: PAIN
     Dosage: 20MG PER DAY
     Route: 048
     Dates: start: 20061019
  3. PROTONIX [Concomitant]
     Indication: ILL-DEFINED DISORDER
     Dosage: 40MG PER DAY
     Route: 048
  4. ZOFRAN [Concomitant]
     Indication: NAUSEA
     Dosage: 4MG AS REQUIRED
     Route: 048
  5. KLONOPIN [Concomitant]
     Indication: ANXIETY
     Dosage: 1MG TWICE PER DAY
     Route: 048
  6. XANAX [Concomitant]
     Indication: ANXIETY
     Dosage: .5MG PER DAY
     Route: 048
  7. TYLENOL [Concomitant]
     Indication: PAIN
     Dosage: 325MG AS REQUIRED
     Route: 048
  8. COUMADIN [Concomitant]
     Route: 048
  9. SPIRONOLACTONE [Concomitant]
     Dosage: 25MG PER DAY
     Route: 048
  10. OXYCODONE HCL [Concomitant]
     Dosage: 5MG AS REQUIRED
     Route: 048
  11. LASIX [Concomitant]
     Dosage: 40MG TWICE PER DAY
     Route: 048
  12. K-DUR 10 [Concomitant]
     Dosage: 20MEQ TWICE PER DAY
     Route: 048
  13. UNKNOWN MEDICATION [Concomitant]
     Dosage: 20MG THREE TIMES PER DAY
     Dates: start: 20061108

REACTIONS (6)
  - BACK PAIN [None]
  - BONE PAIN [None]
  - CRYING [None]
  - HEADACHE [None]
  - NAUSEA [None]
  - VOMITING [None]
